FAERS Safety Report 18438253 (Version 1)
Quarter: 2020Q4

REPORT INFORMATION
  Report Type: Spontaneous
  Country: ES (occurrence: ES)
  Receive Date: 20201028
  Receipt Date: 20201028
  Transmission Date: 20210114
  Serious: Yes (Hospitalization, Other)
  Sender: FDA-Public Use
  Company Number: ES-SA-2020SA296537

PATIENT

DRUGS (4)
  1. CORTISONE [Suspect]
     Active Substance: CORTISONE
     Dosage: UNKNOWN
     Route: 065
  2. LANTUS [Suspect]
     Active Substance: INSULIN GLARGINE
     Indication: DIABETES MELLITUS
     Dosage: 18 IU, QD
     Route: 058
     Dates: start: 2016
  3. LANTUS [Suspect]
     Active Substance: INSULIN GLARGINE
     Dosage: 34 IU, QD
     Route: 058
  4. LANTUS [Suspect]
     Active Substance: INSULIN GLARGINE
     Dosage: FASTING GLUCOSE IS THREE DAYS ABOVE 130MG/DL, INCREASE 2IU AND IF IT IS 3 DAYS BELOW, DECREASE 2IU
     Route: 058

REACTIONS (12)
  - Memory impairment [Unknown]
  - Hyperglycaemia [Unknown]
  - Tremor [Recovered/Resolved]
  - Intentional product misuse [Unknown]
  - Feeling abnormal [Recovered/Resolved]
  - Renal disorder [Recovered/Resolved]
  - Blood glucose increased [Recovered/Resolved]
  - Hot flush [Recovered/Resolved]
  - Dizziness [Recovered/Resolved]
  - Respiratory tract infection [Recovered/Resolved]
  - Cardiac disorder [Recovered/Resolved]
  - Hypoglycaemia [Recovered/Resolved]
